FAERS Safety Report 14937129 (Version 1)
Quarter: 2018Q2

REPORT INFORMATION
  Report Type: Spontaneous
  Country: HR (occurrence: HR)
  Receive Date: 20180525
  Receipt Date: 20180525
  Transmission Date: 20180711
  Serious: Yes (Other)
  Sender: FDA-Public Use
  Company Number: HR-TEVA-2018-HR-897599

PATIENT
  Sex: Female

DRUGS (3)
  1. ZIPANTOLA [Suspect]
     Active Substance: PANTOPRAZOLE SODIUM
     Route: 048
     Dates: start: 20171202, end: 20171202
  2. IBUPROFEN. [Suspect]
     Active Substance: IBUPROFEN
     Dosage: 24 GRAM DAILY;
     Route: 048
     Dates: start: 20171202, end: 20171202
  3. INDOMETACIN [Suspect]
     Active Substance: INDOMETHACIN
     Dosage: 1 GRAM DAILY;
     Route: 048
     Dates: start: 20171202, end: 20171202

REACTIONS (3)
  - No adverse event [Unknown]
  - Intentional overdose [Unknown]
  - Suicide attempt [Unknown]

NARRATIVE: CASE EVENT DATE: 20171202
